FAERS Safety Report 11438619 (Version 1)
Quarter: 2015Q3

REPORT INFORMATION
  Report Type: Spontaneous
  Country: US (occurrence: US)
  Receive Date: 20150901
  Receipt Date: 20150901
  Transmission Date: 20151125
  Serious: No
  Sender: FDA-Public Use
  Company Number: US-ROCHE-1167659

PATIENT
  Sex: Female

DRUGS (2)
  1. RIBAVIRIN. [Suspect]
     Active Substance: RIBAVIRIN
     Indication: CHRONIC HEPATITIS C
     Route: 065
     Dates: start: 20121125
  2. PEGASYS [Suspect]
     Active Substance: PEGINTERFERON ALFA-2A
     Indication: CHRONIC HEPATITIS C
     Route: 058
     Dates: start: 20121125

REACTIONS (11)
  - Dizziness [Unknown]
  - Pain [Unknown]
  - Nausea [Unknown]
  - Injection site erythema [Unknown]
  - Arthralgia [Unknown]
  - Asthenia [Unknown]
  - Hemiparesis [Unknown]
  - Influenza like illness [Unknown]
  - Paraesthesia [Unknown]
  - Cerebrovascular accident [Recovered/Resolved]
  - Product quality issue [Unknown]
